FAERS Safety Report 4823328-X (Version None)
Quarter: 2005Q4

REPORT INFORMATION
  Report Type: 
  Country: None (occurrence: None)
  Receive Date: 20051108
  Receipt Date: 20051108
  Transmission Date: 20060501
  Serious: Yes (Other)
  Sender: FDA-Public Use
  Company Number: None

PATIENT
  Age: 63 Year
  Sex: Male
  Weight: 95.2554 kg

DRUGS (1)
  1. CRESTOR [Suspect]
     Indication: HYPERLIPIDAEMIA
     Dosage: 10 MG   DAILY   PO
     Route: 048
     Dates: start: 20041215, end: 20050912

REACTIONS (3)
  - ASTHENIA [None]
  - MYALGIA [None]
  - MYOPATHY [None]
